FAERS Safety Report 6302115-X (Version None)
Quarter: 2009Q3

REPORT INFORMATION
  Report Type: 
  Country: None (occurrence: None)
  Receive Date: 20090807
  Receipt Date: 20090804
  Transmission Date: 20100115
  Serious: Yes (Other)
  Sender: FDA-Public Use
  Company Number: US-JNJCH-2009021189

PATIENT
  Sex: Female

DRUGS (1)
  1. LISTERINE WHITENING VIBRANT WHITE PRE-BRUSH RINSE [Suspect]
     Indication: DRUG USE FOR UNKNOWN INDICATION
     Dosage: TEXT:UNSPECIFIED
     Route: 050

REACTIONS (5)
  - FLUID INTAKE REDUCED [None]
  - GINGIVAL DISCOLOURATION [None]
  - PAIN [None]
  - SENSORY DISTURBANCE [None]
  - TOOTHACHE [None]
